FAERS Safety Report 9809758 (Version 1)
Quarter: 2014Q1

REPORT INFORMATION
  Report Type: Spontaneous
  Country: US (occurrence: US)
  Receive Date: 20140110
  Receipt Date: 20140110
  Transmission Date: 20141002
  Serious: No
  Sender: FDA-Public Use
  Company Number: US-GILEAD-2014-0091630

PATIENT
  Age: 17 Year
  Sex: Male

DRUGS (3)
  1. ATRIPLA [Suspect]
     Indication: PROPHYLAXIS AGAINST HIV INFECTION
     Dosage: 1 DF, UNK
     Route: 065
     Dates: start: 20140104
  2. BACTRIM [Concomitant]
  3. BACTROBAN                          /00753901/ [Concomitant]

REACTIONS (3)
  - Nausea [Unknown]
  - Dizziness [Unknown]
  - Fatigue [Unknown]
